FAERS Safety Report 4527771-8 (Version None)
Quarter: 2004Q4

REPORT INFORMATION
  Report Type: 
  Country: None (occurrence: None)
  Receive Date: 20041215
  Receipt Date: 20041119
  Transmission Date: 20050328
  Serious: No
  Sender: FDA-Public Use
  Company Number: CA-GLAXOSMITHKLINE-A0535050A

PATIENT
  Age: 56 Year
  Sex: Female

DRUGS (5)
  1. ADVAIR DISKUS 100/50 [Suspect]
     Indication: CHRONIC OBSTRUCTIVE AIRWAYS DISEASE
     Dosage: 1PUFF TWICE PER DAY
     Route: 055
     Dates: start: 20020520, end: 20041204
  2. SINGULAIR [Concomitant]
     Indication: ASTHMA
     Dosage: 10MG PER DAY
     Route: 048
     Dates: start: 20020520, end: 20041204
  3. PRAVACHOL [Concomitant]
     Indication: BLOOD CHOLESTEROL
     Dosage: 40MG AT NIGHT
     Dates: start: 20020520, end: 20041130
  4. PERPHENAZINE [Concomitant]
     Indication: INSOMNIA
     Dosage: 4MG AT NIGHT
     Route: 048
     Dates: start: 20020527, end: 20041103
  5. PREMARIN [Concomitant]
     Indication: HORMONE REPLACEMENT THERAPY
     Dosage: .6MG PER DAY
     Route: 048
     Dates: start: 20020527, end: 20041130

REACTIONS (11)
  - ASTHENIA [None]
  - BLOOD PRESSURE INCREASED [None]
  - DYSGEUSIA [None]
  - DYSPNOEA [None]
  - MALAISE [None]
  - NIGHTMARE [None]
  - PALPITATIONS [None]
  - PANIC REACTION [None]
  - PHARMACEUTICAL PRODUCT COMPLAINT [None]
  - SUFFOCATION FEELING [None]
  - TACHYCARDIA [None]
